FAERS Safety Report 9830532 (Version 2)
Quarter: 2014Q1

REPORT INFORMATION
  Report Type: Report from Study
  Country: CA (occurrence: CA)
  Receive Date: 20140120
  Receipt Date: 20140127
  Transmission Date: 20141002
  Serious: Yes (Hospitalization)
  Sender: FDA-Public Use
  Company Number: CA-BRISTOL-MYERS SQUIBB COMPANY-20044590

PATIENT
  Age: 67 Year
  Sex: Female

DRUGS (16)
  1. ACETAMINOPHEN [Concomitant]
  2. SALBUTAMOL [Concomitant]
  3. ACTONEL [Concomitant]
  4. CRESTOR [Concomitant]
  5. CALCIUM [Concomitant]
  6. VITAMIN D [Concomitant]
  7. ENALAPRIL [Concomitant]
  8. ATIVAN [Concomitant]
  9. OMEPRAZOLE [Concomitant]
  10. SYNTHROID [Concomitant]
  11. ASPIRIN [Concomitant]
  12. PREDNISONE [Concomitant]
  13. HYDROXYCHLOROQUINE [Concomitant]
  14. AMLODIPINE [Concomitant]
  15. HYDROCHLOROTHIAZIDE [Concomitant]
  16. ORENCIA [Suspect]
     Indication: RHEUMATOID ARTHRITIS
     Dosage: 1 DF= 750 UNITS. ABATACEPT INFUSION SCHEDULED FOR 14-JAN-2014 WAS CANCELLED.
     Dates: start: 20100921

REACTIONS (3)
  - Arterial occlusive disease [Unknown]
  - Adverse event [Unknown]
  - Fatigue [Unknown]
